FAERS Safety Report 6257232-X (Version None)
Quarter: 2009Q3

REPORT INFORMATION
  Report Type: 
  Country: None (occurrence: None)
  Receive Date: 20090706
  Receipt Date: 20090626
  Transmission Date: 20100115
  Serious: Yes (Other)
  Sender: FDA-Public Use
  Company Number: US-PFIZER INC-2008073413

PATIENT
  Sex: Female
  Weight: 78.181 kg

DRUGS (4)
  1. AMLODIPINE BESYLATE [Suspect]
     Indication: HYPERTENSION
     Dosage: QD
     Dates: start: 20080201, end: 20080801
  2. LOVASTATIN [Concomitant]
  3. FLONASE [Concomitant]
  4. ZOCOR [Concomitant]

REACTIONS (4)
  - BLISTER [None]
  - DRUG INEFFECTIVE [None]
  - PHOTOSENSITIVITY REACTION [None]
  - SUNBURN [None]
